FAERS Safety Report 6146800-1 (Version None)
Quarter: 2009Q2

REPORT INFORMATION
  Report Type: 
  Country: None (occurrence: None)
  Receive Date: 20090403
  Receipt Date: 20090403
  Transmission Date: 20091009
  Serious: Yes (Hospitalization)
  Sender: FDA-Public Use
  Company Number: None

PATIENT
  Sex: Female
  Weight: 85.8 kg

DRUGS (3)
  1. FLUOROURACIL [Suspect]
     Dosage: 3682 MG
     Dates: end: 20090120
  2. CAMPTOSAR [Suspect]
     Dosage: 236 MG
     Dates: end: 20090106
  3. LEUCOVORIN CALCIUM [Suspect]
     Dosage: 788 MG
     Dates: end: 20090120

REACTIONS (5)
  - BLOOD PRESSURE DECREASED [None]
  - DEHYDRATION [None]
  - HAEMOGLOBIN DECREASED [None]
  - LOSS OF CONSCIOUSNESS [None]
  - WHITE BLOOD CELL COUNT DECREASED [None]
